FAERS Safety Report 7175939-7 (Version None)
Quarter: 2010Q4

REPORT INFORMATION
  Report Type: 
  Country: None (occurrence: None)
  Receive Date: 20101220
  Receipt Date: 20101209
  Transmission Date: 20110411
  Serious: Yes (Hospitalization)
  Sender: FDA-Public Use
  Company Number: US-BIOGENIDEC-2010BI012305

PATIENT
  Age: 50 Year
  Sex: Female

DRUGS (3)
  1. AVONEX [Suspect]
     Indication: MULTIPLE SCLEROSIS
     Route: 030
     Dates: start: 20070911
  2. MIRAPEX [Concomitant]
     Indication: MUSCLE SPASMS
  3. IBUPROFEN [Concomitant]
     Indication: PAIN

REACTIONS (11)
  - ANKLE FRACTURE [None]
  - ARTHRALGIA [None]
  - BONE DISORDER [None]
  - ERYTHEMA [None]
  - EYE INJURY [None]
  - FALL [None]
  - FEELING GUILTY [None]
  - FRACTURE NONUNION [None]
  - REMOVAL OF INTERNAL FIXATION [None]
  - RENAL IMPAIRMENT [None]
  - WOUND SECRETION [None]
